FAERS Safety Report 6911152-3 (Version None)
Quarter: 2010Q3

REPORT INFORMATION
  Report Type: 
  Country: None (occurrence: None)
  Receive Date: 20100806
  Receipt Date: 20100730
  Transmission Date: 20110219
  Serious: Yes (Hospitalization)
  Sender: FDA-Public Use
  Company Number: JP-MERCK-1007USA04072

PATIENT
  Age: 58 Year
  Sex: Female

DRUGS (4)
  1. FOSAMAX [Suspect]
     Indication: OSTEOPOROSIS
     Route: 048
     Dates: start: 20100518, end: 20100721
  2. MERCAZOLE [Suspect]
     Route: 065
     Dates: start: 20100518, end: 20100721
  3. ZANTAC [Concomitant]
     Route: 065
     Dates: start: 20100525, end: 20100706
  4. TAKEPRON [Concomitant]
     Route: 065
     Dates: start: 20100707, end: 20100722

REACTIONS (1)
  - HEPATIC FUNCTION ABNORMAL [None]
